FAERS Safety Report 5133422-4 (Version None)
Quarter: 2006Q4

REPORT INFORMATION
  Report Type: 
  Country: None (occurrence: None)
  Receive Date: 20061024
  Receipt Date: 20060921
  Transmission Date: 20070319
  Serious: Yes (Disabling)
  Sender: FDA-Public Use
  Company Number: 2006AC01764

PATIENT
  Age: 790 Month
  Sex: Male
  Weight: 83 kg

DRUGS (2)
  1. CRESTOR [Suspect]
     Indication: HYPERCHOLESTEROLAEMIA
     Route: 048
     Dates: start: 20050101, end: 20060501
  2. CRESTOR [Suspect]
     Route: 048
     Dates: start: 20060801, end: 20060901

REACTIONS (4)
  - ASTHENIA [None]
  - DYSARTHRIA [None]
  - DYSPHONIA [None]
  - VERTIGO [None]
